FAERS Safety Report 20257369 (Version 1)
Quarter: 2021Q4

REPORT INFORMATION
  Report Type: Spontaneous
  Country: DE (occurrence: DE)
  Receive Date: 20211230
  Receipt Date: 20211230
  Transmission Date: 20220303
  Serious: Yes (Hospitalization, Other)
  Sender: FDA-Public Use
  Company Number: None

PATIENT
  Age: 86 Year
  Sex: Female
  Weight: 65 kg

DRUGS (1)
  1. APIXABAN [Suspect]
     Active Substance: APIXABAN
     Indication: Atrial fibrillation
     Dosage: 5MG 1-0-0
     Route: 048
     Dates: end: 20211124

REACTIONS (3)
  - Paresis [Recovering/Resolving]
  - Extradural haematoma [Recovering/Resolving]
  - Epidural haemorrhage [Recovering/Resolving]

NARRATIVE: CASE EVENT DATE: 20211124
